FAERS Safety Report 11723287 (Version 3)
Quarter: 2016Q1

REPORT INFORMATION
  Report Type: Spontaneous
  Country: US (occurrence: US)
  Receive Date: 20151111
  Receipt Date: 20160314
  Transmission Date: 20160525
  Serious: Yes (Hospitalization, Other)
  Sender: FDA-Public Use
  Company Number: US-PFIZER INC-2015378072

PATIENT
  Age: 67 Year
  Sex: Female
  Weight: 53.24 kg

DRUGS (9)
  1. REVATIO [Suspect]
     Active Substance: SILDENAFIL CITRATE
     Indication: HYPERTROPHIC CARDIOMYOPATHY
     Dosage: 20 MG, 3X/DAY
     Dates: start: 2001
  2. REVATIO [Suspect]
     Active Substance: SILDENAFIL CITRATE
     Indication: CARDIAC DISORDER
     Dosage: 40 MG, 3X/DAY
     Route: 048
     Dates: start: 2001
  3. REVATIO [Suspect]
     Active Substance: SILDENAFIL CITRATE
     Indication: PULMONARY HYPERTENSION
     Dosage: 40 MG, 3X/DAY
     Route: 048
  4. LASIX [Concomitant]
     Active Substance: FUROSEMIDE
     Dosage: 80 MG, 2X/DAY
     Dates: start: 201510
  5. WARFARIN [Concomitant]
     Active Substance: WARFARIN
     Dosage: UNK, DAILY (6 TO 8 MG DAILY DISPENSING ON BLOOD WORK )
     Dates: start: 2001
  6. LASIX [Concomitant]
     Active Substance: FUROSEMIDE
     Dosage: UNK
     Dates: start: 2001, end: 2015
  7. BUMEX [Concomitant]
     Active Substance: BUMETANIDE
     Dosage: 2 MG, UNK
     Dates: start: 20151215
  8. VERAPAMIL [Concomitant]
     Active Substance: VERAPAMIL HYDROCHLORIDE
     Indication: HEART RATE
     Dosage: UNK
     Dates: start: 2015
  9. LASIX [Concomitant]
     Active Substance: FUROSEMIDE
     Indication: DIURETIC THERAPY
     Dosage: 40 MG, 2X/DAY

REACTIONS (5)
  - Bronchitis [Recovered/Resolved]
  - Arrhythmia [Recovered/Resolved]
  - Malaise [Unknown]
  - Cardiac failure congestive [Recovered/Resolved]
  - Product use issue [Recovered/Resolved]

NARRATIVE: CASE EVENT DATE: 2001
